FAERS Safety Report 9329493 (Version 1)
Quarter: 2013Q2

REPORT INFORMATION
  Report Type: Spontaneous
  Country: US (occurrence: US)
  Receive Date: 20130604
  Receipt Date: 20130604
  Transmission Date: 20140414
  Serious: No
  Sender: FDA-Public Use
  Company Number: US-SANOFI-AVENTIS-2012SA093751

PATIENT
  Age: 55 Year
  Sex: Male

DRUGS (5)
  1. LANTUS SOLOSTAR [Suspect]
     Indication: TYPE 2 DIABETES MELLITUS
     Dosage: DOSE:40 UNIT(S)
     Route: 058
     Dates: start: 201208
  2. LANTUS SOLOSTAR [Suspect]
     Indication: TYPE 2 DIABETES MELLITUS
     Dosage: DOSE:30 UNIT(S)
     Route: 058
  3. SOLOSTAR [Suspect]
  4. APIDRA SOLOSTAR [Suspect]
     Dosage: DOSE:20 UNIT(S)
     Route: 058
     Dates: start: 2012
  5. SOLOSTAR [Suspect]

REACTIONS (2)
  - Inappropriate schedule of drug administration [Unknown]
  - Feeling abnormal [Unknown]
